FAERS Safety Report 15266770 (Version 1)
Quarter: 2018Q4

REPORT INFORMATION
  Report Type: Spontaneous
  Country: NL (occurrence: NL)
  Receive Date: 20180810
  Receipt Date: 20180810
  Transmission Date: 20190204
  Serious: Yes (Other)
  Sender: FDA-Public Use
  Company Number: NL-TEVA-2018-NL-941858

PATIENT
  Age: 54 Year
  Sex: Male
  Weight: 87 kg

DRUGS (2)
  1. AMOXICILLINE/CLAVULAANZUUR TABLET, 500/125 MG (MILLIGRAM) [Suspect]
     Active Substance: AMOXICILLIN\CLAVULANATE POTASSIUM
     Indication: ANTIBIOTIC PROPHYLAXIS
     Dosage: 3 X DGS 1 TABLET
     Dates: start: 20171202, end: 20171206
  2. PARACETAMOL [Concomitant]
     Active Substance: ACETAMINOPHEN
     Dosage: 1000 MG ORALLY 4 TIMES A DAY
     Route: 065

REACTIONS (2)
  - Enterocolitis haemorrhagic [Recovered/Resolved]
  - Rash pruritic [Recovered/Resolved]

NARRATIVE: CASE EVENT DATE: 20171205
